FAERS Safety Report 11786744 (Version 1)
Quarter: 2015Q4

REPORT INFORMATION
  Report Type: Not Available
  Country: LT (occurrence: LT)
  Receive Date: 20151130
  Receipt Date: 20151130
  Transmission Date: 20160305
  Serious: Yes (Other)
  Sender: FDA-Public Use
  Company Number: LT-SYNTHON BV-NL01PV15_40019

PATIENT
  Sex: Male

DRUGS (1)
  1. FLOSIN [Suspect]
     Active Substance: TAMSULOSIN
     Indication: DYSURIA
     Route: 048

REACTIONS (4)
  - Apathy [Unknown]
  - Blindness [Unknown]
  - Somnolence [Unknown]
  - Haematuria [Unknown]
